FAERS Safety Report 6614154-X (Version None)
Quarter: 2010Q1

REPORT INFORMATION
  Report Type: 
  Country: None (occurrence: None)
  Receive Date: 20100304
  Receipt Date: 20100222
  Transmission Date: 20100710
  Serious: Yes (Other)
  Sender: FDA-Public Use
  Company Number: US-GILEAD-2010-0027254

PATIENT
  Sex: Male
  Weight: 90.8 kg

DRUGS (2)
  1. AMBRISENTAN [Suspect]
     Indication: IDIOPATHIC PULMONARY FIBROSIS
     Route: 048
     Dates: start: 20100119
  2. AMBRISENTAN [Suspect]
     Route: 048
     Dates: start: 20091222, end: 20100104

REACTIONS (3)
  - ANGINA UNSTABLE [None]
  - HAEMOGLOBIN DECREASED [None]
  - HAEMOPTYSIS [None]
